FAERS Safety Report 23151449 (Version 1)
Quarter: 2023Q4

REPORT INFORMATION
  Report Type: Spontaneous
  Country: US (occurrence: US)
  Receive Date: 20231107
  Receipt Date: 20231107
  Transmission Date: 20240109
  Serious: Yes (Other)
  Sender: FDA-Public Use
  Company Number: US-NOVITIUMPHARMA-2023USNVP01904

PATIENT
  Age: 59 Year
  Sex: Female

DRUGS (2)
  1. PREDNISONE [Suspect]
     Active Substance: PREDNISONE
     Indication: Spondyloarthropathy
  2. METHOTREXATE [Concomitant]
     Active Substance: METHOTREXATE
     Indication: Spondyloarthropathy

REACTIONS (1)
  - Immunosuppression [Recovering/Resolving]
